FAERS Safety Report 21660017 (Version 2)
Quarter: 2022Q4

REPORT INFORMATION
  Report Type: Spontaneous
  Country: RU (occurrence: None)
  Receive Date: 20221130
  Receipt Date: 20221213
  Transmission Date: 20230112
  Serious: Yes (Other)
  Sender: FDA-Public Use
  Company Number: RU-ROCHE-3226741

PATIENT
  Age: 67 Year

DRUGS (1)
  1. TECENTRIQ [Suspect]
     Active Substance: ATEZOLIZUMAB
     Indication: Bladder cancer stage II
     Route: 041
     Dates: start: 20200820

REACTIONS (4)
  - Pneumonia [Unknown]
  - Coronavirus infection [Unknown]
  - Prostatitis [Unknown]
  - Inflammation [Unknown]
